FAERS Safety Report 9485352 (Version 48)
Quarter: 2018Q1

REPORT INFORMATION
  Report Type: Spontaneous
  Country: CA (occurrence: CA)
  Receive Date: 20130828
  Receipt Date: 20180322
  Transmission Date: 20180509
  Serious: Yes (Hospitalization, Other)
  Sender: FDA-Public Use
  Company Number: CA-ROCHE-1267612

PATIENT
  Age: 29 Year
  Sex: Female

DRUGS (38)
  1. XOLAIR [Suspect]
     Active Substance: OMALIZUMAB
     Route: 058
     Dates: start: 20150916, end: 20150916
  2. XOLAIR [Suspect]
     Active Substance: OMALIZUMAB
     Route: 058
     Dates: start: 20160913
  3. XOLAIR [Suspect]
     Active Substance: OMALIZUMAB
     Route: 058
     Dates: start: 20170112
  4. ZENHALE [Concomitant]
     Active Substance: FORMOTEROL FUMARATE\MOMETASONE FUROATE
     Indication: PRODUCT USED FOR UNKNOWN INDICATION
     Dosage: 2 DF, BID
     Route: 065
     Dates: start: 20121001
  5. PANTOLOC [Concomitant]
     Active Substance: PANTOPRAZOLE SODIUM
     Indication: PROPHYLAXIS AGAINST GASTROINTESTINAL ULCER
     Dosage: 1 DF, BID
     Route: 048
  6. BETAHISTINE TEVA [Concomitant]
     Indication: VERTIGO
     Dosage: 2 DF, BID
     Route: 048
  7. FLUNARIZINE [Concomitant]
     Active Substance: FLUNARIZINE
     Indication: VERTIGO
     Dosage: 2 DF, QD
     Route: 048
  8. XOLAIR [Suspect]
     Active Substance: OMALIZUMAB
     Route: 058
     Dates: start: 20170126
  9. XOLAIR [Suspect]
     Active Substance: OMALIZUMAB
     Route: 058
     Dates: start: 20170307
  10. XOLAIR [Suspect]
     Active Substance: OMALIZUMAB
     Route: 058
     Dates: start: 20170530
  11. XOLAIR [Suspect]
     Active Substance: OMALIZUMAB
     Route: 058
     Dates: start: 20170727
  12. XOLAIR [Suspect]
     Active Substance: OMALIZUMAB
     Route: 058
     Dates: start: 20171101
  13. GENTAMICIN. [Concomitant]
     Active Substance: GENTAMICIN
     Indication: MENIERE^S DISEASE
     Dosage: UNK
     Route: 065
  14. XOLAIR [Suspect]
     Active Substance: OMALIZUMAB
     Route: 058
     Dates: start: 20161115
  15. XOLAIR [Suspect]
     Active Substance: OMALIZUMAB
     Route: 058
     Dates: start: 20170629
  16. XOLAIR [Suspect]
     Active Substance: OMALIZUMAB
     Route: 058
     Dates: start: 20150821
  17. MOMETASONE [Concomitant]
     Active Substance: MOMETASONE
     Indication: PRODUCT USED FOR UNKNOWN INDICATION
     Dosage: UNK
     Route: 065
  18. XOLAIR [Suspect]
     Active Substance: OMALIZUMAB
     Route: 058
     Dates: start: 20160712
  19. XOLAIR [Suspect]
     Active Substance: OMALIZUMAB
     Route: 058
     Dates: start: 20160823
  20. XOLAIR [Suspect]
     Active Substance: OMALIZUMAB
     Route: 058
     Dates: start: 20161006
  21. XOLAIR [Suspect]
     Active Substance: OMALIZUMAB
     Route: 058
     Dates: start: 20170323
  22. NAPROXEN. [Concomitant]
     Active Substance: NAPROXEN
     Indication: INFLAMMATION
     Route: 065
  23. XOLAIR [Suspect]
     Active Substance: OMALIZUMAB
     Indication: ASTHMA
     Route: 058
     Dates: start: 20130813
  24. BETAHISTINE TEVA [Concomitant]
     Indication: MENIERE^S DISEASE
     Route: 065
  25. XOLAIR [Suspect]
     Active Substance: OMALIZUMAB
     Route: 058
     Dates: start: 20170809
  26. XOLAIR [Suspect]
     Active Substance: OMALIZUMAB
     Route: 058
     Dates: start: 20170920
  27. XOLAIR [Suspect]
     Active Substance: OMALIZUMAB
     Route: 058
     Dates: start: 20161213
  28. XOLAIR [Suspect]
     Active Substance: OMALIZUMAB
     Route: 058
     Dates: start: 20170515
  29. XOLAIR [Suspect]
     Active Substance: OMALIZUMAB
     Route: 058
     Dates: start: 20170713
  30. XOLAIR [Suspect]
     Active Substance: OMALIZUMAB
     Route: 058
     Dates: start: 20170513
  31. ASMANEX [Concomitant]
     Active Substance: MOMETASONE FUROATE
     Indication: PRODUCT USED FOR UNKNOWN INDICATION
     Dosage: UNK
     Route: 065
  32. SPIRIVA [Concomitant]
     Active Substance: TIOTROPIUM BROMIDE MONOHYDRATE
     Indication: PRODUCT USED FOR UNKNOWN INDICATION
     Dosage: 2 DF, QD
     Route: 065
     Dates: start: 20160401
  33. FLUNARIZINE [Concomitant]
     Active Substance: FLUNARIZINE
     Indication: MENIERE^S DISEASE
     Route: 065
  34. XOLAIR [Suspect]
     Active Substance: OMALIZUMAB
     Route: 058
     Dates: start: 20161229
  35. XOLAIR [Suspect]
     Active Substance: OMALIZUMAB
     Route: 058
     Dates: start: 20170208
  36. XOLAIR [Suspect]
     Active Substance: OMALIZUMAB
     Route: 058
     Dates: start: 20170501
  37. VENTOLIN [Concomitant]
     Active Substance: ALBUTEROL SULFATE
     Indication: PRODUCT USED FOR UNKNOWN INDICATION
     Dosage: PRN
     Route: 065
     Dates: start: 19860101
  38. NAPROXEN. [Concomitant]
     Active Substance: NAPROXEN
     Indication: PAIN
     Dosage: 1 DF, BID
     Route: 048

REACTIONS (50)
  - Multiple sclerosis [Unknown]
  - Drop attacks [Unknown]
  - Meniere^s disease [Unknown]
  - Venous thrombosis limb [Unknown]
  - Wound infection [Unknown]
  - Visual impairment [Not Recovered/Not Resolved]
  - Anaesthetic complication [Unknown]
  - Influenza [Unknown]
  - Dyspnoea [Unknown]
  - Cyst [Unknown]
  - Respiratory disorder [Unknown]
  - Papilloedema [Recovering/Resolving]
  - Genitourinary tract infection [Unknown]
  - Obesity [Unknown]
  - Gastric infection [Unknown]
  - Cystitis [Not Recovered/Not Resolved]
  - Nausea [Unknown]
  - Rib fracture [Unknown]
  - Lower respiratory tract infection [Recovered/Resolved]
  - Migraine [Unknown]
  - Forced expiratory volume decreased [Unknown]
  - Respiratory distress [Recovering/Resolving]
  - Fall [Unknown]
  - General physical health deterioration [Unknown]
  - Middle insomnia [Unknown]
  - Optic neuritis [Unknown]
  - Head injury [Unknown]
  - Concomitant disease aggravated [Unknown]
  - Loss of consciousness [Unknown]
  - Blood pressure increased [Not Recovered/Not Resolved]
  - Cough [Unknown]
  - Asthma [Unknown]
  - Malaise [Recovering/Resolving]
  - Polycystic ovaries [Unknown]
  - Grip strength decreased [Unknown]
  - Ovarian cyst [Not Recovered/Not Resolved]
  - Abdominal pain upper [Not Recovered/Not Resolved]
  - Drug ineffective [Unknown]
  - Sensitivity to weather change [Unknown]
  - Breast abscess [Unknown]
  - Wrist fracture [Unknown]
  - Intraocular pressure increased [Recovering/Resolving]
  - Pneumonia [Unknown]
  - Tendon rupture [Unknown]
  - Joint dislocation [Unknown]
  - Vertigo [Not Recovered/Not Resolved]
  - Concussion [Unknown]
  - Pain [Unknown]
  - Skin infection [Unknown]
  - Pyrexia [Unknown]

NARRATIVE: CASE EVENT DATE: 20130822
